FAERS Safety Report 4614017-5 (Version None)
Quarter: 2005Q1

REPORT INFORMATION
  Report Type: 
  Country: None (occurrence: None)
  Receive Date: 20050316
  Receipt Date: 20050303
  Transmission Date: 20050727
  Serious: Yes (Life-Threatening, Hospitalization)
  Sender: FDA-Public Use
  Company Number: 2005JP000451

PATIENT
  Age: 49 Year
  Sex: Female
  Weight: 35 kg

DRUGS (26)
  1. TACROLIMUS CAPSULES(TACROLIMUS CAPSULES) CAPSULE [Suspect]
     Indication: LUNG TRANSPLANT
     Dosage: SEE IMAGE
     Route: 048
     Dates: start: 20020423, end: 20020503
  2. TACROLIMUS CAPSULES(TACROLIMUS CAPSULES) CAPSULE [Suspect]
     Indication: LUNG TRANSPLANT
     Dosage: SEE IMAGE
     Route: 048
     Dates: start: 20020522, end: 20020721
  3. TACROLIMUS CAPSULES(TACROLIMUS CAPSULES) CAPSULE [Suspect]
     Indication: LUNG TRANSPLANT
     Dosage: SEE IMAGE
     Route: 048
     Dates: start: 20020722, end: 20020918
  4. TACROLIMUS CAPSULES(TACROLIMUS CAPSULES) CAPSULE [Suspect]
     Indication: LUNG TRANSPLANT
     Dosage: SEE IMAGE
     Route: 048
     Dates: start: 20021016
  5. IMURAN(AZATHIOPRINE) TABLET [Suspect]
     Indication: LUNG TRANSPLANT
     Dosage: ORAL
     Route: 048
     Dates: start: 20020424
  6. METHYLPREDNISOLONE [Concomitant]
  7. PREDNISONE [Concomitant]
  8. ELCITONIN (ELCATONIN) INJECTION [Concomitant]
  9. MEROPEN (MEROPENEM) INJECTION [Concomitant]
  10. HOKUNALIN (TULOBUTEROL HYDROCHLORIDE) TAPE [Concomitant]
  11. BISOLVON (BROMHEXINE HYDROCHLORIDE) [Concomitant]
  12. ALOTEC (ORCIPRENALINE SULFATE) [Concomitant]
  13. COLIMYCIN (COLISTIN MESILATE SODIUM) [Concomitant]
  14. FUNGIZONE [Concomitant]
  15. ASTAT (LANOCONAZOLE) SOLUTION [Concomitant]
  16. NIZORAL (KETOCONAZOLE) CREAM [Concomitant]
  17. RULID (ROXITHROMYCIN) TABLET [Concomitant]
  18. DIFLUCAN (FLUCONAZOLE) CAPSULE [Concomitant]
  19. ZANTAC [Concomitant]
  20. ZOLPIDEM TARTRATE [Concomitant]
  21. SULFAMETHOXAZOLE AND TRIMETHOPRIM [Concomitant]
  22. DENOSINE (GANCICLOVIR) [Concomitant]
  23. AMBOBAN (ZOPICLONE) TABLET [Concomitant]
  24. DOGMATYL (SULPIRIDE) [Concomitant]
  25. LORAZEPAM [Concomitant]
  26. VASOLAN (VERAPAMIL HYDROCHLORIDE) TABLET [Suspect]

REACTIONS (4)
  - DIFFUSE PANBRONCHIOLITIS [None]
  - DISEASE RECURRENCE [None]
  - PNEUMONIA [None]
  - PYOTHORAX [None]
